FAERS Safety Report 12322832 (Version 1)
Quarter: 2016Q2

REPORT INFORMATION
  Report Type: Spontaneous
  Country: US (occurrence: US)
  Receive Date: 20160502
  Receipt Date: 20160502
  Transmission Date: 20160815
  Serious: Yes (Other)
  Sender: FDA-Public Use
  Company Number: US-INDIVIOR LIMITED-INDV-090080-2016

PATIENT
  Sex: Male

DRUGS (4)
  1. SUBOXONE [Suspect]
     Active Substance: BUPRENORPHINE HYDROCHLORIDE\NALOXONE HYDROCHLORIDE
     Dosage: TAKING LESS THAN PRESCRIBED, TOOK SUBOXONE 8 MG, TAKING 1-2 STRIPS TWICE DIALY
     Route: 060
     Dates: start: 20160419, end: 20160424
  2. ROXICODONE [Suspect]
     Active Substance: OXYCODONE HYDROCHLORIDE
     Indication: BACK PAIN
     Dosage: 2-15MG, DAY
     Route: 045
     Dates: start: 20160418, end: 20160418
  3. SUBOXONE [Suspect]
     Active Substance: BUPRENORPHINE HYDROCHLORIDE\NALOXONE HYDROCHLORIDE
     Indication: DRUG DEPENDENCE
     Dosage: 8 MG, BID
     Route: 060
     Dates: start: 201603, end: 20160417
  4. ROXICODONE [Suspect]
     Active Substance: OXYCODONE HYDROCHLORIDE
     Dosage: UNK
     Route: 065

REACTIONS (13)
  - Muscle twitching [Recovered/Resolved]
  - Drug dependence [Not Recovered/Not Resolved]
  - Somnolence [Recovered/Resolved]
  - Back pain [Not Recovered/Not Resolved]
  - Fall [Recovered/Resolved]
  - Loss of consciousness [Recovered/Resolved]
  - Product use issue [Recovered/Resolved]
  - Intentional underdose [Recovered/Resolved]
  - Insomnia [Unknown]
  - Drug abuse [Recovered/Resolved]
  - Therapy cessation [Recovered/Resolved]
  - Energy increased [Not Recovered/Not Resolved]
  - Seizure [Recovered/Resolved]

NARRATIVE: CASE EVENT DATE: 201603
